FAERS Safety Report 7683998-8 (Version None)
Quarter: 2011Q3

REPORT INFORMATION
  Report Type: 
  Country: None (occurrence: None)
  Receive Date: 20110815
  Receipt Date: 20110805
  Transmission Date: 20111222
  Serious: Yes (Disabling, Other)
  Sender: FDA-Public Use
  Company Number: US-ASTRAZENECA-2010SE43845

PATIENT
  Age: 81 Year
  Sex: Female

DRUGS (1)
  1. SYMBICORT [Suspect]
     Dosage: 160/4.5MCG INHALE 2 PUFFS
     Route: 055

REACTIONS (5)
  - PERIORBITAL HAEMATOMA [None]
  - DRUG DOSE OMISSION [None]
  - MACULAR DEGENERATION [None]
  - BLINDNESS [None]
  - DYSPNOEA [None]
